FAERS Safety Report 8048275-4 (Version None)
Quarter: 2012Q1

REPORT INFORMATION
  Report Type: 
  Country: None (occurrence: None)
  Receive Date: 20120113
  Receipt Date: 20120113
  Transmission Date: 20120608
  Serious: Yes (Death)
  Sender: FDA-Public Use
  Company Number: None

PATIENT
  Age: 73 Year
  Sex: Male

DRUGS (13)
  1. HYDROMORPHONE HCL [Concomitant]
  2. VICODIN [Concomitant]
  3. DECADRON [Concomitant]
  4. ALBUTEROL [Concomitant]
  5. ATENOLOL [Concomitant]
  6. PROZAC [Concomitant]
  7. TERAZOSIN HCL [Concomitant]
  8. IPRATROPIUM BROMIDE [Concomitant]
  9. REVLIMID [Suspect]
     Indication: MULTIPLE MYELOMA
     Dosage: 15MG QDX21D/28D ORALLY
     Route: 048
     Dates: start: 20080701, end: 20110301
  10. LASIX [Concomitant]
  11. MORPHINE [Concomitant]
  12. CLONAZEPAM [Concomitant]
  13. PLAVIX [Concomitant]

REACTIONS (5)
  - MENTAL STATUS CHANGES [None]
  - HYPOCALCAEMIA [None]
  - BONE MARROW FAILURE [None]
  - RENAL FAILURE ACUTE [None]
  - CHEST PAIN [None]
